FAERS Safety Report 17390592 (Version 2)
Quarter: 2020Q1

REPORT INFORMATION
  Report Type: Report from Study
  Country: None (occurrence: DE)
  Receive Date: 20200207
  Receipt Date: 20200211
  Transmission Date: 20200409
  Serious: Yes (Hospitalization)
  Sender: FDA-Public Use
  Company Number: DE-ABBVIE-20K-062-3264512-00

PATIENT
  Age: 80 Year
  Sex: Female

DRUGS (3)
  1. ROACTEMRA [Concomitant]
     Active Substance: TOCILIZUMAB
     Dates: start: 201810, end: 201904
  2. HUMIRA [Suspect]
     Active Substance: ADALIMUMAB
     Indication: RHEUMATOID ARTHRITIS
     Route: 058
     Dates: start: 201012, end: 201111
  3. ROACTEMRA [Concomitant]
     Active Substance: TOCILIZUMAB
     Indication: PRODUCT USED FOR UNKNOWN INDICATION
     Dates: start: 201201, end: 201309

REACTIONS (2)
  - Osteoarthritis [Unknown]
  - Arthrodesis [Unknown]

NARRATIVE: CASE EVENT DATE: 20190305
